FAERS Safety Report 7868233-X (Version None)
Quarter: 2011Q4

REPORT INFORMATION
  Report Type: 
  Country: None (occurrence: None)
  Receive Date: 20111028
  Receipt Date: 20111026
  Transmission Date: 20120403
  Serious: Yes (Disabling)
  Sender: FDA-Public Use
  Company Number: US-MERCK-1106USA01815

PATIENT
  Age: 56 Year
  Sex: Female

DRUGS (1)
  1. FOSAMAX [Suspect]
     Indication: OSTEOPENIA
     Route: 048
     Dates: start: 20020411, end: 20051102

REACTIONS (5)
  - HYPERTENSION [None]
  - DEPRESSION [None]
  - BLOOD CHOLESTEROL INCREASED [None]
  - ANXIETY [None]
  - FEMUR FRACTURE [None]
